FAERS Safety Report 5234776-0 (Version None)
Quarter: 2007Q1

REPORT INFORMATION
  Report Type: 
  Country: None (occurrence: None)
  Receive Date: 20070209
  Receipt Date: 20070131
  Transmission Date: 20070707
  Serious: Yes (Other)
  Sender: FDA-Public Use
  Company Number: US-PFIZER INC-2006149217

PATIENT
  Sex: Male
  Weight: 84.8 kg

DRUGS (2)
  1. VARENICLINE [Suspect]
     Indication: SMOKING CESSATION THERAPY
     Route: 048
  2. VARENICLINE [Suspect]
     Indication: TOBACCO USER

REACTIONS (2)
  - MANIA [None]
  - PSYCHOTIC DISORDER [None]
